FAERS Safety Report 10053287 (Version 1)
Quarter: 2014Q2

REPORT INFORMATION
  Report Type: Spontaneous
  Country: US (occurrence: US)
  Receive Date: 20140402
  Receipt Date: 20140402
  Transmission Date: 20141212
  Serious: Yes (Death, Hospitalization)
  Sender: FDA-Public Use
  Company Number: US-TEVA-472249USA

PATIENT
  Age: 33 Year
  Sex: Male
  Weight: 83.54 kg

DRUGS (6)
  1. SYNRIBO [Suspect]
     Indication: CHRONIC MYELOID LEUKAEMIA
     Dates: start: 20131112, end: 20140213
  2. VFEND [Concomitant]
     Indication: INFECTION
  3. AUGMENTIN [Concomitant]
     Indication: INFECTION
     Dosage: 875 MILLIGRAM DAILY;
     Route: 048
  4. SUDAFED [Concomitant]
  5. DOCUSATE SODIUM [Concomitant]
  6. SENNA [Concomitant]

REACTIONS (2)
  - Death [Fatal]
  - Hospitalisation [Unknown]
